FAERS Safety Report 24379784 (Version 5)
Quarter: 2024Q4

REPORT INFORMATION
  Report Type: Spontaneous
  Country: US (occurrence: US)
  Receive Date: 20240930
  Receipt Date: 20241219
  Transmission Date: 20250115
  Serious: No
  Sender: PFIZER
  Company Number: US-PFIZER INC-202400264051

PATIENT
  Age: 43 Year
  Sex: Female

DRUGS (1)
  1. TIVDAK [Suspect]
     Active Substance: TISOTUMAB VEDOTIN-TFTV
     Dosage: 94 MG INFUSION EVERY 3 WEEKS
     Route: 042
     Dates: start: 202410

REACTIONS (2)
  - Ocular discomfort [Unknown]
  - Weight decreased [Unknown]
